FAERS Safety Report 9665861 (Version 1)
Quarter: 2013Q4

REPORT INFORMATION
  Report Type: Spontaneous
  Country: GB (occurrence: GB)
  Receive Date: 20131104
  Receipt Date: 20131104
  Transmission Date: 20140711
  Serious: Yes (Other)
  Sender: FDA-Public Use
  Company Number: PHHY2013GB119581

PATIENT
  Sex: 0

DRUGS (1)
  1. ATENOLOL [Suspect]
     Dosage: 50 MG, UNK

REACTIONS (3)
  - Palpitations [Unknown]
  - Hypoaesthesia [Unknown]
  - Headache [Unknown]
